FAERS Safety Report 4901406-4 (Version None)
Quarter: 2006Q1

REPORT INFORMATION
  Report Type: 
  Country: None (occurrence: None)
  Receive Date: 20060201
  Receipt Date: 20060201
  Transmission Date: 20060701
  Serious: Yes (Disabling)
  Sender: FDA-Public Use
  Company Number: None

PATIENT

DRUGS (2)
  1. LIPITOR [Suspect]
     Indication: BLOOD CHOLESTEROL INCREASED
     Dosage: 1  1 A DAY PO
     Dates: start: 20040801, end: 20051130
  2. LIPITOR [Suspect]

REACTIONS (1)
  - MUSCULAR WEAKNESS [None]
